FAERS Safety Report 7064684-4 (Version None)
Quarter: 2010Q4

REPORT INFORMATION
  Report Type: 
  Country: None (occurrence: None)
  Receive Date: 20101022
  Receipt Date: 20101022
  Transmission Date: 20110411
  Serious: Yes (Other)
  Sender: FDA-Public Use
  Company Number: None

PATIENT
  Age: 18 Year
  Sex: Female
  Weight: 59.8748 kg

DRUGS (1)
  1. DRYSOL DAB-O-MATIC 35 ML PERSON + COVEY [Suspect]
     Indication: HYPERHIDROSIS
     Dosage: USE 1 APPLICATION EXTERNALLY TWICE A WEEK

REACTIONS (3)
  - HYPERHIDROSIS [None]
  - PAIN [None]
  - PRODUCT QUALITY ISSUE [None]
